FAERS Safety Report 25797215 (Version 1)
Quarter: 2025Q3

REPORT INFORMATION
  Report Type: Spontaneous
  Country: US (occurrence: US)
  Receive Date: 20250912
  Receipt Date: 20250912
  Transmission Date: 20251020
  Serious: No
  Sender: CALLIDITAS THERAPEUTICS AB
  Company Number: US-Calliditas-2025CAL02750

PATIENT
  Age: 20 Year
  Sex: Female

DRUGS (9)
  1. TARPEYO [Suspect]
     Active Substance: BUDESONIDE
     Indication: IgA nephropathy
     Route: 048
     Dates: start: 20250319, end: 202508
  2. NORVASC [Concomitant]
     Active Substance: AMLODIPINE BESYLATE
  3. VITAMIN D NOS [Concomitant]
     Active Substance: CHOLECALCIFEROL\ERGOCALCIFEROL
  4. JARDIANCE [Concomitant]
     Active Substance: EMPAGLIFLOZIN
  5. LEXAPRO [Concomitant]
     Active Substance: ESCITALOPRAM OXALATE
  6. FERROUS SULFATE [Concomitant]
     Active Substance: FERROUS SULFATE
  7. FOLVITE [Concomitant]
     Active Substance: FOLIC ACID
  8. LOSARTAN [Concomitant]
     Active Substance: LOSARTAN
  9. REMERON [Concomitant]
     Active Substance: MIRTAZAPINE

REACTIONS (2)
  - Chest pain [Unknown]
  - Dyspnoea [Unknown]
